FAERS Safety Report 7645510-9 (Version None)
Quarter: 2011Q3

REPORT INFORMATION
  Report Type: 
  Country: None (occurrence: None)
  Receive Date: 20110729
  Receipt Date: 20110728
  Transmission Date: 20111222
  Serious: Yes (Hospitalization, Other)
  Sender: FDA-Public Use
  Company Number: LT-ABBOTT-11P-234-0836198-00

PATIENT
  Age: 78 Year
  Sex: Female
  Weight: 89 kg

DRUGS (6)
  1. TARKA [Suspect]
     Dates: start: 20110701
  2. ATORVASTATIN [Concomitant]
     Indication: DYSLIPIDAEMIA
     Route: 048
     Dates: start: 20110627
  3. TARKA [Suspect]
     Indication: HYPERTENSION
     Dosage: 180MG/2MG, 1 TABLET DAILY
     Route: 048
     Dates: end: 20110630
  4. ASPIRIN [Concomitant]
     Indication: PRODUCT USED FOR UNKNOWN INDICATION
  5. METHIZOL [Concomitant]
     Indication: HYPERTHYROIDISM
     Dosage: SD
  6. WARFARIN SODIUM [Concomitant]
     Indication: ATRIAL FIBRILLATION

REACTIONS (3)
  - PRESYNCOPE [None]
  - ATRIAL FIBRILLATION [None]
  - ATRIOVENTRICULAR BLOCK COMPLETE [None]
